FAERS Safety Report 11824100 (Version 3)
Quarter: 2015Q4

REPORT INFORMATION
  Report Type: Spontaneous
  Country: US (occurrence: US)
  Receive Date: 20151210
  Receipt Date: 20151229
  Transmission Date: 20160305
  Serious: Yes (Other)
  Sender: FDA-Public Use
  Company Number: US-BRISTOL-MYERS SQUIBB COMPANY-BMS-2015-084641

PATIENT
  Sex: Male

DRUGS (1)
  1. SPRYCEL [Suspect]
     Active Substance: DASATINIB
     Indication: CONNECTIVE TISSUE NEOPLASM
     Dosage: 70 MG, BID; 17NOV2015
     Route: 048
     Dates: start: 20151117

REACTIONS (3)
  - Peripheral swelling [Unknown]
  - Off label use [Unknown]
  - Thrombosis [Unknown]
